FAERS Safety Report 8935627 (Version 1)
Quarter: 2012Q4

REPORT INFORMATION
  Report Type: 
  Country: US (occurrence: US)
  Receive Date: 20121130
  Receipt Date: 20121130
  Transmission Date: 20130627
  Serious: Yes (Congenital Anomaly, Other)
  Sender: FDA-Public Use
  Company Number: US-PFIZER INC-2012299001

PATIENT
  Age: 6 Month
  Sex: Male
  Weight: 3 kg

DRUGS (5)
  1. ZOLOFT [Suspect]
     Indication: PANIC ATTACKS
     Dosage: 150 mg, UNK
     Route: 064
     Dates: start: 20030425
  2. ZOLOFT [Suspect]
     Dosage: 50 mg, UNK
     Route: 064
     Dates: start: 20040129
  3. ZOLOFT [Suspect]
     Dosage: 100 mg, UNK
     Route: 064
     Dates: start: 20040405
  4. ZOLOFT [Suspect]
     Dosage: 125mg, daily
     Route: 064
  5. PRENATAL VITAMINS [Concomitant]
     Dosage: UNK
     Route: 064

REACTIONS (3)
  - Maternal exposure timing unspecified [Unknown]
  - Atrial septal defect [Unknown]
  - Cardiomegaly [Unknown]
